FAERS Safety Report 14266662 (Version 2)
Quarter: 2017Q4

REPORT INFORMATION
  Report Type: Report from Study
  Country: None (occurrence: CA)
  Receive Date: 20171211
  Receipt Date: 20171213
  Transmission Date: 20180321
  Serious: Yes (Other)
  Sender: FDA-Public Use
  Company Number: CA-ABBVIE-17K-028-2188699-00

PATIENT
  Sex: Male

DRUGS (2)
  1. IRON [Suspect]
     Active Substance: IRON
     Indication: ANAEMIA
     Route: 058
  2. HUMIRA [Suspect]
     Active Substance: ADALIMUMAB
     Indication: CROHN^S DISEASE
     Route: 058
     Dates: start: 20150928

REACTIONS (1)
  - Anaemia [Not Recovered/Not Resolved]
